FAERS Safety Report 20036084 (Version 1)
Quarter: 2021Q4

REPORT INFORMATION
  Report Type: Spontaneous
  Country: US (occurrence: US)
  Receive Date: 20211105
  Receipt Date: 20211105
  Transmission Date: 20220303
  Serious: No
  Sender: FDA-Public Use
  Company Number: US-NOVARTISTESTPH-NVSC2021US246682

PATIENT
  Age: 85 Year
  Sex: Male

DRUGS (1)
  1. IMATINIB [Suspect]
     Active Substance: IMATINIB
     Indication: Philadelphia positive chronic myeloid leukaemia
     Dosage: UNK
     Route: 065
     Dates: start: 20130101, end: 20140101

REACTIONS (6)
  - Differential white blood cell count abnormal [Unknown]
  - Splenomegaly [Unknown]
  - Karyotype analysis abnormal [Unknown]
  - Cytogenetic analysis abnormal [Unknown]
  - Abdominal pain upper [Unknown]
  - Drug intolerance [Unknown]

NARRATIVE: CASE EVENT DATE: 20151103
